FAERS Safety Report 10986354 (Version 1)
Quarter: 2015Q2

REPORT INFORMATION
  Report Type: Spontaneous
  Country: None (occurrence: None)
  Receive Date: 20150403
  Receipt Date: 20150403
  Transmission Date: 20150821
  Serious: No
  Sender: FDA-Public Use
  Company Number: None

PATIENT
  Age: 64 Year
  Sex: Male
  Weight: 70.31 kg

DRUGS (2)
  1. SULFAMETHOXAZOLE [Suspect]
     Active Substance: SULFAMETHOXAZOLE
     Indication: POST PROCEDURAL INFLAMMATION
     Dosage: 1  TWICE DAILY TAKEN BY MOUTH
     Route: 048
     Dates: start: 20150302, end: 20150402
  2. NARATRIPTAM [Concomitant]

REACTIONS (3)
  - Tetanus [None]
  - Muscle contractions involuntary [None]
  - Muscle spasms [None]

NARRATIVE: CASE EVENT DATE: 20150401
